FAERS Safety Report 8467049-3 (Version None)
Quarter: 2012Q2

REPORT INFORMATION
  Report Type: 
  Country: None (occurrence: None)
  Receive Date: 20120626
  Receipt Date: 20120611
  Transmission Date: 20120825
  Serious: Yes (Other)
  Sender: FDA-Public Use
  Company Number: TR-WATSON-2012-10210

PATIENT

DRUGS (1)
  1. TOPIRAMATE [Suspect]
     Indication: NEONATAL ASPHYXIA
     Dosage: 2-4 MG/KG/DAY
     Route: 048

REACTIONS (1)
  - DRUG INEFFECTIVE [None]
